FAERS Safety Report 9039474 (Version 1)
Quarter: 2013Q1

REPORT INFORMATION
  Report Type: Spontaneous
  Country: US (occurrence: None)
  Receive Date: 20130123
  Receipt Date: 20130123
  Transmission Date: 20140127
  Serious: Yes (Disabling)
  Sender: FDA-Public Use
  Company Number: None

PATIENT
  Age: 40 Year
  Sex: Female

DRUGS (3)
  1. KLONOPIN [Suspect]
     Indication: POSTPARTUM DEPRESSION
  2. KLONOPIN [Suspect]
     Indication: PANIC DISORDER
  3. KLONOPIN [Suspect]
     Indication: OBSESSIVE-COMPULSIVE DISORDER

REACTIONS (2)
  - Performance status decreased [None]
  - Product substitution issue [None]
